FAERS Safety Report 4294078-6 (Version None)
Quarter: 2004Q1

REPORT INFORMATION
  Report Type: 
  Country: None (occurrence: None)
  Receive Date: 20040211
  Receipt Date: 20040129
  Transmission Date: 20041129
  Serious: No
  Sender: FDA-Public Use
  Company Number: 04H-028-0249023-00

PATIENT
  Sex: Female

DRUGS (1)
  1. MORPHINE SULFATE 5MG/ML INJ W/SODIUM METABISULFITE, USP, 30 ML PCA [Suspect]
     Dosage: 5 MG, 1 DOSE EVERY 5 MINUTES, PCA

REACTIONS (3)
  - ACCIDENTAL OVERDOSE [None]
  - MEDICATION ERROR [None]
  - RESPIRATORY ARREST [None]
